FAERS Safety Report 10542519 (Version 2)
Quarter: 2014Q4

REPORT INFORMATION
  Report Type: Spontaneous
  Country: IT (occurrence: IT)
  Receive Date: 20141027
  Receipt Date: 20141106
  Transmission Date: 20150529
  Serious: Yes (Other)
  Sender: FDA-Public Use
  Company Number: IT-THROMBOGENICS NV-SPO-2014-1359

PATIENT

DRUGS (4)
  1. IODOPOVIDONE ALPHARMA [Concomitant]
     Route: 047
  2. JETREA [Suspect]
     Active Substance: OCRIPLASMIN
     Dosage: 0.125 MG, ONE TIME DOSE
     Route: 031
  3. NOVESINA [Concomitant]
  4. TOBRADEX [Concomitant]
     Active Substance: DEXAMETHASONE\TOBRAMYCIN
     Route: 047

REACTIONS (2)
  - Corneal epithelium defect [Unknown]
  - Visual acuity reduced transiently [Recovered/Resolved]
